FAERS Safety Report 7605180-2 (Version None)
Quarter: 2011Q3

REPORT INFORMATION
  Report Type: 
  Country: None (occurrence: None)
  Receive Date: 20110705
  Receipt Date: 20110623
  Transmission Date: 20111222
  Serious: Yes (Death, Hospitalization)
  Sender: FDA-Public Use
  Company Number: 963371

PATIENT
  Age: 76 Year
  Sex: Male

DRUGS (7)
  1. VENTOLIN [Concomitant]
  2. ATROVENT [Concomitant]
  3. BISOPROLOL FUMARATE [Concomitant]
  4. VALSARTAN  AND HYDROCHLOROTHIAZIDE [Concomitant]
  5. DIGITOXIN TAB [Concomitant]
  6. TAMSULOSIN HCL [Concomitant]
  7. VINORELBINE TARTRATE [Suspect]
     Indication: NON-SMALL CELL LUNG CANCER
     Dosage: 50 MG INTRAVENOUS
     Route: 042
     Dates: start: 20110503, end: 20110510

REACTIONS (16)
  - BLOOD PH INCREASED [None]
  - LARYNGEAL OEDEMA [None]
  - INSOMNIA [None]
  - PCO2 DECREASED [None]
  - FALL [None]
  - PCO2 INCREASED [None]
  - DYSPNOEA [None]
  - MENTAL DISORDER [None]
  - LARYNGEAL ERYTHEMA [None]
  - PULSE ABSENT [None]
  - BASE EXCESS DECREASED [None]
  - PO2 DECREASED [None]
  - PSYCHOTIC DISORDER [None]
  - APNOEA [None]
  - RESPIRATORY DISORDER [None]
  - BLOOD PH DECREASED [None]
